FAERS Safety Report 25263255 (Version 1)
Quarter: 2025Q2

REPORT INFORMATION
  Report Type: Spontaneous
  Country: US (occurrence: US)
  Receive Date: 20250502
  Receipt Date: 20250502
  Transmission Date: 20250716
  Serious: Yes (Hospitalization)
  Sender: MYLAN
  Company Number: US-MYLANLABS-2025M1036916

PATIENT
  Age: 55 Year
  Sex: Male

DRUGS (32)
  1. FENTANYL [Suspect]
     Active Substance: FENTANYL
     Indication: Pain
  2. FENTANYL [Suspect]
     Active Substance: FENTANYL
     Route: 065
  3. FENTANYL [Suspect]
     Active Substance: FENTANYL
     Route: 065
  4. FENTANYL [Suspect]
     Active Substance: FENTANYL
  5. METHADONE [Suspect]
     Active Substance: METHADONE HYDROCHLORIDE
     Indication: Pain
  6. METHADONE [Suspect]
     Active Substance: METHADONE HYDROCHLORIDE
     Route: 065
  7. METHADONE [Suspect]
     Active Substance: METHADONE HYDROCHLORIDE
     Route: 065
  8. METHADONE [Suspect]
     Active Substance: METHADONE HYDROCHLORIDE
  9. SUFENTANIL [Suspect]
     Active Substance: SUFENTANIL
     Indication: Pain
     Dosage: 700 MICROGRAM, QD
  10. SUFENTANIL [Suspect]
     Active Substance: SUFENTANIL
     Dosage: 700 MICROGRAM, QD
     Route: 037
  11. SUFENTANIL [Suspect]
     Active Substance: SUFENTANIL
     Dosage: 700 MICROGRAM, QD
     Route: 037
  12. SUFENTANIL [Suspect]
     Active Substance: SUFENTANIL
     Dosage: 700 MICROGRAM, QD
  13. HYDROMORPHONE [Suspect]
     Active Substance: HYDROMORPHONE
     Indication: Pain
  14. HYDROMORPHONE [Suspect]
     Active Substance: HYDROMORPHONE
     Route: 048
  15. HYDROMORPHONE [Suspect]
     Active Substance: HYDROMORPHONE
     Route: 048
  16. HYDROMORPHONE [Suspect]
     Active Substance: HYDROMORPHONE
  17. HYDROMORPHONE [Suspect]
     Active Substance: HYDROMORPHONE
     Indication: Pain
  18. HYDROMORPHONE [Suspect]
     Active Substance: HYDROMORPHONE
     Route: 042
  19. HYDROMORPHONE [Suspect]
     Active Substance: HYDROMORPHONE
     Route: 042
  20. HYDROMORPHONE [Suspect]
     Active Substance: HYDROMORPHONE
  21. LIDOCAINE [Suspect]
     Active Substance: LIDOCAINE
     Indication: Pain
  22. LIDOCAINE [Suspect]
     Active Substance: LIDOCAINE
     Route: 065
  23. LIDOCAINE [Suspect]
     Active Substance: LIDOCAINE
     Route: 065
  24. LIDOCAINE [Suspect]
     Active Substance: LIDOCAINE
  25. CLONIDINE [Concomitant]
     Active Substance: CLONIDINE
     Indication: Pain
  26. CLONIDINE [Concomitant]
     Active Substance: CLONIDINE
     Route: 037
  27. CLONIDINE [Concomitant]
     Active Substance: CLONIDINE
     Route: 037
  28. CLONIDINE [Concomitant]
     Active Substance: CLONIDINE
  29. BUPIVACAINE [Concomitant]
     Active Substance: BUPIVACAINE
     Indication: Pain
  30. BUPIVACAINE [Concomitant]
     Active Substance: BUPIVACAINE
     Route: 037
  31. BUPIVACAINE [Concomitant]
     Active Substance: BUPIVACAINE
     Route: 037
  32. BUPIVACAINE [Concomitant]
     Active Substance: BUPIVACAINE

REACTIONS (7)
  - Neurotoxicity [Recovering/Resolving]
  - Disorientation [Recovering/Resolving]
  - Tremor [Recovering/Resolving]
  - Agitation [Recovering/Resolving]
  - Myoclonus [Recovering/Resolving]
  - Delirium [Recovering/Resolving]
  - Drug ineffective [Unknown]
